FAERS Safety Report 10482638 (Version 1)
Quarter: 2014Q3

REPORT INFORMATION
  Report Type: Spontaneous
  Country: GB (occurrence: GB)
  Receive Date: 20140929
  Receipt Date: 20140929
  Transmission Date: 20150326
  Serious: Yes (Other)
  Sender: FDA-Public Use
  Company Number: PHFR2014GB006550

PATIENT
  Age: 35 Year
  Sex: Female
  Weight: 69 kg

DRUGS (3)
  1. BETAMETHASONE VALERATE. [Concomitant]
     Active Substance: BETAMETHASONE VALERATE
     Dosage: UNK UKN, UNK
     Dates: start: 20140801, end: 20140802
  2. NORIDAY [Concomitant]
     Active Substance: FERROUS FUMARATE\MESTRANOL\NORETHINDRONE
     Dosage: UNK UKN, UNK
     Dates: start: 20140724
  3. TERBINAFINE [Suspect]
     Active Substance: TERBINAFINE
     Indication: ONYCHOMYCOSIS
     Dosage: UNK UKN, UNK
     Dates: start: 20140718, end: 20140821

REACTIONS (2)
  - Rash [Recovered/Resolved]
  - Blister [Recovered/Resolved]

NARRATIVE: CASE EVENT DATE: 20140801
